APPROVED DRUG PRODUCT: IMIQUIMOD
Active Ingredient: IMIQUIMOD
Strength: 5%
Dosage Form/Route: CREAM;TOPICAL
Application: A200481 | Product #001
Applicant: COSETTE PHARMACEUTICALS INC
Approved: Apr 18, 2011 | RLD: No | RS: No | Type: DISCN